FAERS Safety Report 4379686-6 (Version None)
Quarter: 2004Q2

REPORT INFORMATION
  Report Type: 
  Country: None (occurrence: None)
  Receive Date: 20040614
  Receipt Date: 20040527
  Transmission Date: 20050107
  Serious: Yes (Hospitalization)
  Sender: FDA-Public Use
  Company Number: JP-JNJFOC-20040102505

PATIENT
  Age: 60 Year
  Sex: Female
  Weight: 41.4 kg

DRUGS (16)
  1. REMICADE [Suspect]
     Indication: RHEUMATOID ARTHRITIS
     Dosage: 3 MG/KG, 1 IN 1 AS NECESSARY, INTRAVENOUS DRIP
     Route: 041
     Dates: start: 20030930, end: 20030930
  2. REMICADE [Suspect]
     Indication: RHEUMATOID ARTHRITIS
     Dosage: 3 MG/KG, 1 IN 1 AS NECESSARY, INTRAVENOUS DRIP
     Route: 041
     Dates: start: 20031015, end: 20031015
  3. REMICADE [Suspect]
     Indication: RHEUMATOID ARTHRITIS
     Dosage: 3 MG/KG, 1 IN 1 AS NECESSARY, INTRAVENOUS DRIP
     Route: 041
     Dates: start: 20031112, end: 20031112
  4. METHOTREXATE [Concomitant]
  5. INH (ISONIAZID) UNKNOWN [Concomitant]
  6. PREDNISOLONE [Concomitant]
  7. LOXONIN (LOXOPROFEN SODIUM) UNKNOWN [Concomitant]
  8. METHYCOBAL (MECOBALAMIN) UNKNOWN [Concomitant]
  9. AMLODIN (AMLODIPINE BESILATE) UNKNOWN [Concomitant]
  10. DIART (AZOSEMIDE) UNKNOWN [Concomitant]
  11. ZYLORIC (ALLOPURINOL) UNKNOWN [Concomitant]
  12. ULGUT (BENEXATE HYDROCHLORIDE) UNKNOWN [Concomitant]
  13. PURSENNID (SENNA LEAF) UNKNOWN [Concomitant]
  14. DIFLUCAN (FLUCONAZOLE) UNKNOWN [Concomitant]
  15. LANSOPRAZOLE [Concomitant]
  16. EUGLUCON (GLIBENCLAMIDE) UNKNOWN [Concomitant]

REACTIONS (10)
  - CALCULUS URETERIC [None]
  - HYDRONEPHROSIS [None]
  - NEPHROLITHIASIS [None]
  - PLATELET COUNT INCREASED [None]
  - POSTRENAL FAILURE [None]
  - PROTEIN URINE PRESENT [None]
  - RED BLOOD CELL COUNT DECREASED [None]
  - RED BLOOD CELLS URINE POSITIVE [None]
  - RENAL INJURY [None]
  - WHITE BLOOD CELLS URINE POSITIVE [None]
